FAERS Safety Report 10021082 (Version 3)
Quarter: 2014Q2

REPORT INFORMATION
  Report Type: Report from Study
  Country: DE (occurrence: DE)
  Receive Date: 20140319
  Receipt Date: 20140520
  Transmission Date: 20141212
  Serious: Yes (Hospitalization, Other)
  Sender: FDA-Public Use
  Company Number: DE-AMGEN-DEUCT2014018847

PATIENT
  Age: 71 Year
  Sex: Female
  Weight: 59 kg

DRUGS (24)
  1. ETANERCEPT [Suspect]
     Indication: RHEUMATOID ARTHRITIS
     Dosage: 50 MG, QWK
     Route: 065
     Dates: start: 20120530, end: 20140109
  2. OMEPRAZOLE [Concomitant]
     Indication: PROPHYLAXIS AGAINST GASTROINTESTINAL ULCER
     Dosage: 20 MG, 1X/DAY
     Route: 048
     Dates: start: 200910
  3. CALCILAC                           /00751524/ [Concomitant]
     Indication: OSTEOPOROSIS
     Dosage: 1 DF, 1X/DAY
     Route: 048
     Dates: start: 200909
  4. PREDNISOLONE [Concomitant]
     Indication: RHEUMATOID ARTHRITIS
     Dosage: 5 MG, 1X/DAY
     Route: 048
     Dates: start: 201110, end: 201308
  5. PREDNISOLONE [Concomitant]
     Dosage: 30 MG, 1X/DAY
     Dates: start: 201308
  6. PREDNISOLONE [Concomitant]
     Dosage: 25 MG, 1X/DAY
     Dates: start: 201308, end: 201308
  7. PREDNISOLONE [Concomitant]
     Dosage: 20 MG, 1X/DAY
     Dates: start: 201308, end: 201309
  8. PREDNISOLONE [Concomitant]
     Dosage: 15 MG, 1X/DAY
     Dates: start: 201309, end: 201309
  9. PREDNISOLONE [Concomitant]
     Dosage: 12.5 MG, 1X/DAY
     Dates: start: 201309, end: 201309
  10. PREDNISOLONE [Concomitant]
     Dosage: 10 MG, UNK
     Dates: start: 201309, end: 201309
  11. PREDNISOLONE [Concomitant]
     Dosage: 7.5 MG, UNK
     Dates: start: 201309, end: 201309
  12. PREDNISOLONE [Concomitant]
     Dosage: 5 MG, UNK
     Dates: start: 201309, end: 201310
  13. PREDNISOLONE [Concomitant]
     Dosage: 7.5 MG, 1X/DAY
     Dates: start: 201310
  14. METOPROLOL [Concomitant]
     Indication: HYPERTENSION
     Dosage: 47.5 MG, 1X/DAY
     Route: 048
     Dates: start: 201304
  15. OLMETEC [Concomitant]
     Indication: HYPERTENSION
     Dosage: 0.5 DF, 1X/DAY
     Route: 048
     Dates: start: 201101
  16. FOLIC ACID [Concomitant]
     Indication: RHEUMATOID ARTHRITIS
     Dosage: 5 MG, WEEKLY
     Route: 048
     Dates: start: 201003
  17. MTX                                /00113801/ [Concomitant]
     Indication: RHEUMATOID ARTHRITIS
     Dosage: 12.5 MG, WEEKLY
     Route: 058
     Dates: start: 201201
  18. PROLIA [Concomitant]
     Indication: OSTEOPOROSIS
     Dosage: 60 MG, EVERY 6 MONTHS
     Route: 058
     Dates: start: 201103
  19. XALATAN [Concomitant]
     Indication: GLAUCOMA
     Dosage: 1 GTT, 1X/DAY
     Dates: start: 2006
  20. XALATAN [Concomitant]
     Indication: DRY EYE
  21. BERODUAL [Concomitant]
     Indication: CHRONIC OBSTRUCTIVE PULMONARY DISEASE
     Dosage: UNK
     Dates: start: 201305
  22. TILIDINE [Concomitant]
     Indication: BACK PAIN
     Dosage: 50 MG, 1X/DAY
     Dates: start: 201103, end: 201307
  23. TILIDINE [Concomitant]
     Indication: BACK PAIN
     Dosage: 75 MG, 1X/DAY
     Dates: start: 201307
  24. FORMOTEROL [Concomitant]
     Indication: CHRONIC OBSTRUCTIVE PULMONARY DISEASE
     Dosage: UNK
     Route: 055
     Dates: start: 200610

REACTIONS (3)
  - Drug effect decreased [Unknown]
  - Rheumatoid arthritis [Unknown]
  - Arthropathy [Recovered/Resolved with Sequelae]
